FAERS Safety Report 9321594 (Version 1)
Quarter: 2013Q2

REPORT INFORMATION
  Report Type: Spontaneous
  Country: CA (occurrence: CA)
  Receive Date: 20130531
  Receipt Date: 20130531
  Transmission Date: 20140414
  Serious: Yes (Other)
  Sender: FDA-Public Use
  Company Number: CA-TEVA-409135USA

PATIENT
  Age: 66 Year
  Sex: Female
  Weight: 63 kg

DRUGS (4)
  1. CARBOPLATIN [Suspect]
     Dosage: 23.8095 MILLIGRAM DAILY;
     Route: 065
  2. DEXAMETHASONE [Concomitant]
  3. DILAUDID [Concomitant]
  4. ONDANSETRON [Concomitant]

REACTIONS (3)
  - Pruritus [Recovered/Resolved]
  - Throat irritation [Recovered/Resolved]
  - Urticaria [Recovered/Resolved]
